FAERS Safety Report 4806376-5 (Version None)
Quarter: 2005Q4

REPORT INFORMATION
  Report Type: 
  Country: None (occurrence: None)
  Receive Date: 20051019
  Receipt Date: 20051003
  Transmission Date: 20060501
  Serious: Yes (Other)
  Sender: FDA-Public Use
  Company Number: USA0510109866

PATIENT
  Age: 75 Year
  Sex: Female
  Weight: 85 kg

DRUGS (1)
  1. HUMULIN 70/30 [Suspect]
     Dosage: 65 U DAY

REACTIONS (5)
  - CATARACT [None]
  - EYE HAEMORRHAGE [None]
  - OPTIC NERVE DISORDER [None]
  - THROMBOSIS [None]
  - VISUAL DISTURBANCE [None]
